FAERS Safety Report 4580445-X (Version None)
Quarter: 2005Q1

REPORT INFORMATION
  Report Type: 
  Country: None (occurrence: None)
  Receive Date: 20050214
  Receipt Date: 20040128
  Transmission Date: 20050727
  Serious: No
  Sender: FDA-Public Use
  Company Number: US-GLAXOSMITHKLINE-A0495354A

PATIENT
  Age: 64 Year
  Sex: Female

DRUGS (9)
  1. LAMICTAL [Suspect]
     Indication: EPILEPSY
     Dosage: 100MG PER DAY
     Route: 048
     Dates: start: 20040114, end: 20040124
  2. NEURONTIN [Concomitant]
  3. COUMADIN [Concomitant]
  4. DIGOXIN [Concomitant]
  5. ATENOLOL [Concomitant]
  6. WATER PILL [Concomitant]
     Route: 065
  7. PREDNISONE [Concomitant]
     Dosage: 25MG UNKNOWN
     Route: 065
  8. BENADRYL [Concomitant]
  9. PEPCID [Concomitant]

REACTIONS (3)
  - HEADACHE [None]
  - PYREXIA [None]
  - RASH GENERALISED [None]
